FAERS Safety Report 24362861 (Version 1)
Quarter: 2024Q3

REPORT INFORMATION
  Report Type: Report from Study
  Country: MX (occurrence: MX)
  Receive Date: 20240925
  Receipt Date: 20240925
  Transmission Date: 20241017
  Serious: Yes (Hospitalization, Other)
  Sender: INCYTE
  Company Number: MX-002147023-NVSC2024MX178790

PATIENT

DRUGS (5)
  1. RUXOLITINIB [Suspect]
     Active Substance: RUXOLITINIB
     Indication: Primary myelofibrosis
     Dosage: 2 DOSAGE FORM, QD
     Route: 048
     Dates: start: 2022, end: 20240901
  2. RUXOLITINIB [Suspect]
     Active Substance: RUXOLITINIB
     Dosage: 2 DOSAGE FORM, QD
     Route: 048
     Dates: start: 20240912
  3. PRAVASTATIN [Concomitant]
     Active Substance: PRAVASTATIN
     Indication: Portal vein pressure increased
     Dosage: 1 DOSAGE FORM, QD (SEVERAL YEARS AGO)
     Route: 048
  4. OMEPRAZOLE [Concomitant]
     Active Substance: OMEPRAZOLE
     Indication: Gastritis
     Dosage: 1 DOSAGE FORM, QD (SEVERAL YEARS AGO)
     Route: 048
  5. SUCRALFATE [Concomitant]
     Active Substance: SUCRALFATE
     Indication: Gastritis
     Dosage: 1 DOSAGE FORM, QD (SEVERAL YEARS AGO)
     Route: 048

REACTIONS (5)
  - Gastric varices haemorrhage [Recovered/Resolved]
  - Gastric varices haemorrhage [Recovered/Resolved]
  - Gastroenteritis [Recovered/Resolved]
  - Haemoglobin decreased [Recovered/Resolved]
  - Infection [Recovered/Resolved]

NARRATIVE: CASE EVENT DATE: 20230101
